FAERS Safety Report 17860189 (Version 2)
Quarter: 2020Q2

REPORT INFORMATION
  Report Type: Spontaneous
  Country: FR (occurrence: FR)
  Receive Date: 20200604
  Receipt Date: 20200606
  Transmission Date: 20200714
  Serious: Yes (Hospitalization)
  Sender: FDA-Public Use
  Company Number: FR-ACCORD-183655

PATIENT
  Age: 62 Year
  Sex: Male

DRUGS (11)
  1. RAMIPRIL. [Suspect]
     Active Substance: RAMIPRIL
     Indication: CARDIOMYOPATHY
     Route: 048
     Dates: start: 201905, end: 20190529
  2. FOLIC ACID. [Suspect]
     Active Substance: FOLIC ACID
     Indication: CARDIOMYOPATHY
     Route: 048
     Dates: start: 201905, end: 20190530
  3. ELIQUIS [Concomitant]
     Active Substance: APIXABAN
  4. STILNOX [Suspect]
     Active Substance: ZOLPIDEM TARTRATE
     Indication: CARDIOMYOPATHY
     Route: 048
     Dates: end: 20190529
  5. TAHOR [Concomitant]
     Active Substance: ATORVASTATIN CALCIUM
  6. FUROSEMIDE. [Suspect]
     Active Substance: FUROSEMIDE
     Indication: CARDIOMYOPATHY
     Route: 048
     Dates: start: 201905, end: 20190529
  7. PANTOPRAZOLE [Concomitant]
     Active Substance: PANTOPRAZOLE
  8. BISOPROLOL [Suspect]
     Active Substance: BISOPROLOL
     Indication: CARDIOMYOPATHY
     Dosage: 2.5MG - 0 - 5MG
     Route: 048
     Dates: start: 201905
  9. KARDEGIC [Suspect]
     Active Substance: ASPIRIN DL-LYSINE
     Indication: PROPHYLAXIS
     Dosage: 75 MG
     Route: 048
     Dates: start: 201905
  10. AMIODARONE [Concomitant]
     Active Substance: AMIODARONE
  11. SPIRONOLACTONE. [Suspect]
     Active Substance: SPIRONOLACTONE
     Indication: CARDIOMYOPATHY
     Route: 048
     Dates: end: 20190529

REACTIONS (2)
  - Hyperkalaemia [Recovered/Resolved]
  - Acute kidney injury [Recovered/Resolved]

NARRATIVE: CASE EVENT DATE: 20190529
